FAERS Safety Report 9265208 (Version 1)
Quarter: 2013Q2

REPORT INFORMATION
  Report Type: Spontaneous
  Country: GB (occurrence: GB)
  Receive Date: 20130501
  Receipt Date: 20130501
  Transmission Date: 20140414
  Serious: Yes (Hospitalization)
  Sender: FDA-Public Use
  Company Number: GB-ABBOTT-13P-167-1080479-00

PATIENT
  Age: 35 Year
  Sex: Female

DRUGS (8)
  1. RITONIVIR [Suspect]
     Indication: HIV INFECTION
  2. ABACAVIR [Suspect]
     Indication: HIV INFECTION
  3. TENOFOVIR [Suspect]
     Indication: HIV INFECTION
  4. ATAZANAVIR [Suspect]
     Indication: HIV INFECTION
  5. MARAVIROC [Suspect]
     Indication: HIV INFECTION
  6. ZIDOVUDINE [Suspect]
     Indication: HIV INFECTION
  7. RALTEGRAVIR [Suspect]
     Indication: HIV INFECTION
  8. DARUNAVIR [Suspect]
     Indication: HIV INFECTION

REACTIONS (7)
  - Encephalitis [Recovered/Resolved]
  - Lymphocytosis [Recovered/Resolved]
  - Refusal of treatment by patient [None]
  - Therapy cessation [None]
  - Protein total increased [None]
  - Brain oedema [None]
  - Intracranial pressure increased [None]
